FAERS Safety Report 7163211-0 (Version None)
Quarter: 2010Q4

REPORT INFORMATION
  Report Type: 
  Country: None (occurrence: None)
  Receive Date: 20101201
  Receipt Date: 20101118
  Transmission Date: 20110411
  Serious: Yes (Other)
  Sender: FDA-Public Use
  Company Number: ACO_20510_2010

PATIENT
  Age: 64 Year
  Sex: Female
  Weight: 117.9 kg

DRUGS (6)
  1. AMPYRA [Suspect]
     Indication: GAIT DISTURBANCE
     Dosage: 10 MG, BID, ORAL, 10 MG, QD
     Route: 048
     Dates: start: 20100721, end: 20101104
  2. AMPYRA [Suspect]
     Indication: MULTIPLE SCLEROSIS
     Dosage: 10 MG, BID, ORAL, 10 MG, QD
     Route: 048
     Dates: start: 20100721, end: 20101104
  3. AMPYRA [Suspect]
     Indication: GAIT DISTURBANCE
     Dosage: 10 MG, BID, ORAL, 10 MG, QD
     Route: 048
     Dates: start: 20101105, end: 20101111
  4. AMPYRA [Suspect]
     Indication: MULTIPLE SCLEROSIS
     Dosage: 10 MG, BID, ORAL, 10 MG, QD
     Route: 048
     Dates: start: 20101105, end: 20101111
  5. MAXZIDE [Concomitant]
  6. FUROSEMIDE [Concomitant]

REACTIONS (2)
  - INAPPROPRIATE SCHEDULE OF DRUG ADMINISTRATION [None]
  - RENAL IMPAIRMENT [None]
